FAERS Safety Report 5871076-X (Version None)
Quarter: 2008Q3

REPORT INFORMATION
  Report Type: 
  Country: None (occurrence: None)
  Receive Date: 20080904
  Receipt Date: 20050722
  Transmission Date: 20090109
  Serious: Yes (Death, Life-Threatening, Hospitalization)
  Sender: FDA-Public Use
  Company Number: FR-PFIZER INC-2008072317

PATIENT
  Sex: Female

DRUGS (6)
  1. IRINOTECAN HCL [Suspect]
     Indication: METASTATIC GASTRIC CANCER
  2. FLUOROURACIL [Suspect]
     Indication: METASTATIC GASTRIC CANCER
  3. CALCIUM FOLINATE [Suspect]
     Indication: METASTATIC GASTRIC CANCER
  4. CELECTOL [Concomitant]
     Route: 048
  5. COTAREG [Concomitant]
     Route: 048
  6. ACETAMINOPHEN W/ CODEINE [Concomitant]
     Route: 048

REACTIONS (2)
  - ABDOMINAL PAIN [None]
  - NEUTROPENIA [None]
